FAERS Safety Report 18037047 (Version 10)
Quarter: 2021Q3

REPORT INFORMATION
  Report Type: Spontaneous
  Country: AU (occurrence: AU)
  Receive Date: 20200717
  Receipt Date: 20210713
  Transmission Date: 20211014
  Serious: Yes (Hospitalization)
  Sender: FDA-Public Use
  Company Number: AU-DSJP-DSU-2020-120650

PATIENT
  Age: 83 Year
  Sex: Male
  Weight: 92 kg

DRUGS (20)
  1. OLMETEC [Suspect]
     Active Substance: OLMESARTAN MEDOXOMIL
     Indication: HYPERTENSION
     Dosage: 40 MG, QD
     Route: 048
     Dates: start: 199501, end: 20200615
  2. OLAPARIB. [Suspect]
     Active Substance: OLAPARIB
     Dosage: 300 MG, BID
     Route: 048
     Dates: start: 20200527, end: 20200615
  3. PANTOPRAZOLE [Concomitant]
     Active Substance: PANTOPRAZOLE
     Indication: ACUTE MYOCARDIAL INFARCTION
     Dosage: 40 MG, QD
     Route: 048
     Dates: start: 201709
  4. XALACOM [Concomitant]
     Active Substance: LATANOPROST\TIMOLOL MALEATE
     Indication: OPEN ANGLE GLAUCOMA
     Dosage: 4 APPLICATION, QD
     Route: 047
     Dates: start: 201601
  5. PEMBROLIZUMAB. [Suspect]
     Active Substance: PEMBROLIZUMAB
     Dosage: 200 MG, ONCE EVERY 3 WK
     Route: 042
     Dates: start: 20200721, end: 20200721
  6. ACETAMINOPHEN. [Concomitant]
     Active Substance: ACETAMINOPHEN
     Indication: ARTHRALGIA
     Dosage: 3000 MG, PRN
     Route: 048
     Dates: start: 20200613
  7. DENOSUMAB [Concomitant]
     Active Substance: DENOSUMAB
     Indication: PROPHYLAXIS
     Dosage: 120 MG, ONCE EVERY 1 MO
     Route: 058
     Dates: start: 201906
  8. OLMETEC [Suspect]
     Active Substance: OLMESARTAN MEDOXOMIL
     Dosage: 40 MG, QD
     Route: 048
     Dates: start: 20200620, end: 20200703
  9. OLAPARIB. [Suspect]
     Active Substance: OLAPARIB
     Dosage: 300 MG, ONCE, FLUCTUATED DOSAGE
     Route: 048
     Dates: start: 20200630, end: 20200702
  10. LUCRIN [Concomitant]
     Active Substance: LEUPROLIDE ACETATE
     Indication: PROSTATE CANCER
     Dosage: 45 MG, OTHER
     Route: 030
     Dates: start: 201807
  11. PEMBROLIZUMAB. [Suspect]
     Active Substance: PEMBROLIZUMAB
     Indication: HORMONE-REFRACTORY PROSTATE CANCER
     Dosage: 200 MG, ONCE EVERY 3 WK
     Route: 042
     Dates: start: 20200526, end: 20200526
  12. AMLODIPINE [Suspect]
     Active Substance: AMLODIPINE BESYLATE
     Dosage: 10 MG, QD
     Route: 048
     Dates: start: 20200620, end: 20200703
  13. OLAPARIB. [Suspect]
     Active Substance: OLAPARIB
     Indication: HORMONE-REFRACTORY PROSTATE CANCER
     Dosage: 300 MG, SINGLE FLUCTUATED DOSAGE
     Route: 048
     Dates: start: 20200526, end: 20200526
  14. CHOLSTAT                           /01341302/ [Concomitant]
     Indication: HYPERLIPIDAEMIA
     Dosage: 20 MG, QD
     Route: 048
     Dates: start: 199501
  15. OLAPARIB. [Suspect]
     Active Substance: OLAPARIB
     Dosage: STARTING DOSE AT 300 MG BID, FLUCTUATED DOSAGE AND FREQUENCY
     Route: 048
     Dates: start: 20200710, end: 20200712
  16. PEMBROLIZUMAB. [Suspect]
     Active Substance: PEMBROLIZUMAB
     Dosage: 200 MG, ONCE EVERY 3 WK
     Route: 042
     Dates: start: 20200630, end: 20200630
  17. AMLODIPINE [Suspect]
     Active Substance: AMLODIPINE BESYLATE
     Indication: HYPERTENSION
     Dosage: 10 MG, QD
     Route: 048
     Dates: start: 201807, end: 20200615
  18. APIXABAN [Concomitant]
     Active Substance: APIXABAN
     Indication: DUODENAL ULCER PERFORATION
     Dosage: 5 MG, QD
     Route: 048
     Dates: start: 201809, end: 20200618
  19. OLAPARIB. [Suspect]
     Active Substance: OLAPARIB
     Dosage: 300 MG, SINGLE
     Route: 048
     Dates: start: 20200703, end: 20200703
  20. OLAPARIB. [Suspect]
     Active Substance: OLAPARIB
     Dosage: 300 MG, BID
     Route: 048
     Dates: start: 20200721, end: 20200811

REACTIONS (2)
  - Hypotension [Recovered/Resolved]
  - Atrial fibrillation [Recovered/Resolved]

NARRATIVE: CASE EVENT DATE: 20200616
